FAERS Safety Report 17885098 (Version 1)
Quarter: 2020Q2

REPORT INFORMATION
  Report Type: Spontaneous
  Country: US (occurrence: US)
  Receive Date: 20200611
  Receipt Date: 20200611
  Transmission Date: 20200714
  Serious: No
  Sender: FDA-Public Use
  Company Number: US-SA-2020SA149748

PATIENT

DRUGS (1)
  1. APIDRA SOLOSTAR [Suspect]
     Active Substance: INSULIN GLULISINE
     Indication: TYPE 2 DIABETES MELLITUS
     Dosage: 23 IU, TID
     Route: 065

REACTIONS (5)
  - Device operational issue [Unknown]
  - Wrong technique in device usage process [Unknown]
  - Eye irritation [Unknown]
  - Vision blurred [Unknown]
  - Accidental exposure to product [Unknown]
